FAERS Safety Report 9783292 (Version 2)
Quarter: 2014Q2

REPORT INFORMATION
  Report Type: Spontaneous
  Country: GB (occurrence: None)
  Receive Date: 20131223
  Receipt Date: 20140616
  Transmission Date: 20141212
  Serious: Yes (Hospitalization)
  Sender: FDA-Public Use
  Company Number: 2013DE0513

PATIENT
  Age: 69 Year
  Sex: Female

DRUGS (10)
  1. KINERET [Suspect]
     Indication: RHEUMATOID ARTHRITIS
     Route: 058
     Dates: start: 20130527, end: 20131218
  2. OMEPRAZOLE (OMEPRAZOLE) (OMEPAZOLE) [Concomitant]
  3. TOREM (TORASEMIDE) (TORASEMIIDE) [Concomitant]
  4. CITALOPRAM (CITALOPRAM) (CITALOPRAM) [Concomitant]
  5. RANTUDIL (ACEMSTACIN) (ACEMETACIN) [Concomitant]
  6. PREGABALIN (PREGABALIN) (PREGABALIN) (PREGABALIN) [Concomitant]
  7. ATACAND (CANDESARTAN CILEXETIL) (CANDESARTAN CILEXETIL) [Concomitant]
  8. CLINDAMYCIN (CLINDAMYCIN) (CLINDAMYCIN) [Concomitant]
  9. SULFASALAZIN (SULFASALAZINE) (SULFASALAZINE) [Concomitant]
  10. DECORTIN (PREDNISONE) (PREDNISONE) [Concomitant]

REACTIONS (1)
  - Femur fracture [None]
